FAERS Safety Report 17712817 (Version 2)
Quarter: 2020Q3

REPORT INFORMATION
  Report Type: Spontaneous
  Country: US (occurrence: US)
  Receive Date: 20200427
  Receipt Date: 20200715
  Transmission Date: 20201102
  Serious: Yes (Life-Threatening, Hospitalization, Other)
  Sender: FDA-Public Use
  Company Number: US-009507513-2004USA007098

PATIENT
  Age: 51 Year
  Sex: Female

DRUGS (3)
  1. PIFELTRO [Suspect]
     Active Substance: DORAVIRINE
     Indication: HIV INFECTION
     Dosage: 100 MG DAILY
     Route: 048
  2. RITONAVIR. [Concomitant]
     Active Substance: RITONAVIR
  3. TENOFOVIR [Concomitant]
     Active Substance: TENOFOVIR

REACTIONS (6)
  - Gastrostomy [Unknown]
  - Hypoxia [Unknown]
  - Product dose omission issue [Unknown]
  - Coronavirus infection [Recovering/Resolving]
  - Incorrect route of product administration [Unknown]
  - Wrong technique in product usage process [Unknown]

NARRATIVE: CASE EVENT DATE: 20200406
